FAERS Safety Report 4521642-9 (Version None)
Quarter: 2004Q4

REPORT INFORMATION
  Report Type: 
  Country: None (occurrence: None)
  Receive Date: 20041208
  Receipt Date: 20041208
  Transmission Date: 20050328
  Serious: Yes (Life-Threatening, Hospitalization)
  Sender: FDA-Public Use
  Company Number: None

PATIENT
  Age: 84 Year
  Sex: Male
  Weight: 75.8 kg

DRUGS (7)
  1. ETODOLAC [Suspect]
     Indication: ARTHRITIS
     Dosage: 400MG,200MG BI, ORAL
     Route: 048
     Dates: start: 20041109, end: 20041206
  2. LOVASTATIN [Concomitant]
  3. ALBUTEROL [Concomitant]
  4. HCTZ 25/TRIAMTERENE [Concomitant]
  5. FLUNISOLIDE/MENTHOL [Concomitant]
  6. DM 10/GUAIFENESIN [Concomitant]
  7. RANITIDINE HCL [Concomitant]

REACTIONS (1)
  - DYSPNOEA [None]
